FAERS Safety Report 23507882 (Version 1)
Quarter: 2024Q1

REPORT INFORMATION
  Report Type: Spontaneous
  Country: US (occurrence: None)
  Receive Date: 20240209
  Receipt Date: 20240209
  Transmission Date: 20240410
  Serious: Yes (Hospitalization)
  Sender: FDA-Public Use
  Company Number: None

PATIENT
  Sex: Male

DRUGS (1)
  1. NIVESTYM [Suspect]
     Active Substance: FILGRASTIM-AAFI
     Indication: Stem cell transplant
     Dosage: INJECT 2 PREFILLED SYRINGES (TOTAL 960 MCG) UNDER THE SKIN, ONCE DAILY FOR 14 DAYS, UNTIL STEM CELL
     Route: 058
     Dates: start: 202311

REACTIONS (1)
  - Hospitalisation [None]
